FAERS Safety Report 15613016 (Version 1)
Quarter: 2018Q4

REPORT INFORMATION
  Report Type: Spontaneous
  Country: US (occurrence: US)
  Receive Date: 20181113
  Receipt Date: 20181113
  Transmission Date: 20190205
  Serious: Yes (Life-Threatening, Hospitalization, Congenital Anomaly, Other)
  Sender: FDA-Public Use
  Company Number: US-IMPAX LABORATORIES, LLC-2018-IPXL-03711

PATIENT
  Sex: Female
  Weight: 3 kg

DRUGS (7)
  1. MILRINONE [Suspect]
     Active Substance: MILRINONE
     Indication: ALVEOLAR CAPILLARY DYSPLASIA
     Dosage: UNK
     Route: 065
  2. METFORMIN HYDROCHLORIDE ER [Suspect]
     Active Substance: METFORMIN HYDROCHLORIDE
     Indication: MATERNAL EXPOSURE DURING PREGNANCY
     Dosage: UNK
     Route: 015
  3. LABETALOL [Suspect]
     Active Substance: LABETALOL\LABETALOL HYDROCHLORIDE
     Indication: MATERNAL EXPOSURE DURING PREGNANCY
     Dosage: UNK
     Route: 015
  4. TRANEXAMIC ACID. [Suspect]
     Active Substance: TRANEXAMIC ACID
     Indication: HAEMORRHAGE
     Dosage: ESCALATING DOSES, UNK
     Route: 065
  5. EPOPROSTENOL. [Suspect]
     Active Substance: EPOPROSTENOL
     Indication: ALVEOLAR CAPILLARY DYSPLASIA
     Dosage: INFUSION, UNK
     Route: 042
  6. NITRIC OXIDE. [Suspect]
     Active Substance: NITRIC OXIDE
     Indication: ALVEOLAR CAPILLARY DYSPLASIA
     Dosage: INHALED, UNK
     Route: 055
  7. SILDENAFIL. [Suspect]
     Active Substance: SILDENAFIL
     Indication: ALVEOLAR CAPILLARY DYSPLASIA
     Dosage: UNK
     Route: 065

REACTIONS (8)
  - Patent ductus arteriosus [Unknown]
  - Tricuspid valve incompetence [Unknown]
  - Haemothorax [Unknown]
  - Alveolar capillary dysplasia [Unknown]
  - Infantile apnoea [Unknown]
  - Haemorrhage neonatal [Unknown]
  - Maternal exposure during pregnancy [Unknown]
  - Hypothermia neonatal [Unknown]
